FAERS Safety Report 9208341 (Version 1)
Quarter: 2013Q2

REPORT INFORMATION
  Report Type: Spontaneous
  Country: CA (occurrence: CA)
  Receive Date: 20130404
  Receipt Date: 20130404
  Transmission Date: 20140414
  Serious: Yes (Hospitalization)
  Sender: FDA-Public Use
  Company Number: CA-AMGEN-CANSP2013022521

PATIENT
  Age: 49 Year
  Sex: Female

DRUGS (2)
  1. ENBREL [Suspect]
     Indication: RHEUMATOID ARTHRITIS
     Dosage: 50 UNK, UNK
     Route: 058
     Dates: start: 20060621
  2. DICLOFENAC [Concomitant]
     Dosage: UNK

REACTIONS (6)
  - Haemoglobin decreased [Not Recovered/Not Resolved]
  - Blood potassium decreased [Unknown]
  - Blood sodium decreased [Unknown]
  - Coma [Unknown]
  - Helicobacter infection [Not Recovered/Not Resolved]
  - Pharyngitis [Recovered/Resolved]
